FAERS Safety Report 4544467-7 (Version None)
Quarter: 2004Q4

REPORT INFORMATION
  Report Type: 
  Country: None (occurrence: None)
  Receive Date: 20041230
  Receipt Date: 20041215
  Transmission Date: 20050328
  Serious: Yes (Other)
  Sender: FDA-Public Use
  Company Number: 601687

PATIENT
  Age: 57 Year
  Sex: Male
  Weight: 70.7611 kg

DRUGS (3)
  1. GAMMAGARD S/D [Suspect]
     Indication: HYPOGAMMAGLOBULINAEMIA
     Dosage: 25 GM ; QM; INTRAVENOUS
     Route: 042
     Dates: start: 20040601, end: 20041214
  2. GAMMAGARD S/D [Suspect]
  3. ASPIRIN [Concomitant]

REACTIONS (7)
  - BLOOD PRESSURE DIASTOLIC DECREASED [None]
  - BLOOD PRESSURE INCREASED [None]
  - BODY TEMPERATURE INCREASED [None]
  - CHEST DISCOMFORT [None]
  - CHEST PAIN [None]
  - CHILLS [None]
  - LABORATORY TEST INTERFERENCE [None]
